FAERS Safety Report 19993991 (Version 1)
Quarter: 2021Q4

REPORT INFORMATION
  Report Type: Spontaneous
  Country: US (occurrence: US)
  Receive Date: 20211022
  Receipt Date: 20211022
  Transmission Date: 20220303
  Serious: Yes (Hospitalization)
  Sender: FDA-Public Use
  Company Number: None

PATIENT
  Age: 49 Year
  Sex: Male
  Weight: 73.4 kg

DRUGS (2)
  1. IPILIMUMAB [Suspect]
     Active Substance: IPILIMUMAB
     Dates: end: 20211011
  2. NIVOLUMAB [Suspect]
     Active Substance: NIVOLUMAB
     Dates: end: 20211011

REACTIONS (5)
  - Metastatic renal cell carcinoma [None]
  - Dyspnoea [None]
  - Oedema peripheral [None]
  - Abdominal distension [None]
  - Hyponatraemia [None]

NARRATIVE: CASE EVENT DATE: 20211017
